FAERS Safety Report 13210729 (Version 1)
Quarter: 2017Q1

REPORT INFORMATION
  Report Type: Spontaneous
  Country: US (occurrence: US)
  Receive Date: 20170210
  Receipt Date: 20170210
  Transmission Date: 20170428
  Serious: No
  Sender: FDA-Public Use
  Company Number: US-WEST-WARD PHARMACEUTICALS CORP.-US-H14001-17-00117

PATIENT
  Age: 68 Year
  Sex: Female
  Weight: 88.43 kg

DRUGS (2)
  1. FLUTICASONE PROPIONATE 50 MCG METERED SPRAY [Suspect]
     Active Substance: FLUTICASONE PROPIONATE
     Indication: SEASONAL ALLERGY
  2. FLUTICASONE PROPIONATE 50 MCG METERED SPRAY [Suspect]
     Active Substance: FLUTICASONE PROPIONATE
     Indication: NASAL CONGESTION
     Route: 045
     Dates: start: 201612

REACTIONS (3)
  - Epistaxis [Recovered/Resolved]
  - Nasal dryness [Not Recovered/Not Resolved]
  - Inappropriate schedule of drug administration [Not Recovered/Not Resolved]

NARRATIVE: CASE EVENT DATE: 201612
